FAERS Safety Report 9682710 (Version 2)
Quarter: 2013Q4

REPORT INFORMATION
  Report Type: Spontaneous
  Country: GB (occurrence: GB)
  Receive Date: 20131026
  Receipt Date: 20131026
  Transmission Date: 20140711
  Serious: Yes (Life-Threatening, Hospitalization)
  Sender: FDA-Public Use
  Company Number: GB-DRREDDYS-GER/UKI/13/0029716

PATIENT
  Age: 72 Year
  Sex: Male

DRUGS (14)
  1. CLOPIDOGREL [Suspect]
     Indication: PROPHYLAXIS
     Route: 048
     Dates: start: 201206
  2. CLOPIDOGREL [Suspect]
     Indication: MYOCARDIAL INFARCTION
  3. ASPIRIN [Suspect]
     Indication: PROPHYLAXIS
     Route: 048
     Dates: start: 20120626, end: 20120717
  4. ASPIRIN [Suspect]
     Indication: ANTIPLATELET THERAPY
     Dates: start: 20120724
  5. EPLERENONE [Suspect]
     Indication: ACUTE MYOCARDIAL INFARCTION
     Route: 048
     Dates: start: 20120625, end: 20120625
  6. EPLERENONE [Suspect]
     Route: 048
     Dates: start: 20120626, end: 20121003
  7. ATORVASTATIN [Concomitant]
     Indication: PRODUCT USED FOR UNKNOWN INDICATION
  8. BISOPROLOL [Concomitant]
     Indication: PRODUCT USED FOR UNKNOWN INDICATION
  9. FUROSEMIDE [Concomitant]
     Indication: PULMONARY OEDEMA
  10. GLYCERYL TRINITRATE [Concomitant]
     Indication: PRODUCT USED FOR UNKNOWN INDICATION
  11. OMEPRAZOLE [Concomitant]
     Indication: PROPHYLAXIS
  12. PERINDOPRIL [Concomitant]
     Indication: PRODUCT USED FOR UNKNOWN INDICATION
  13. FERROUS SULPHATE [Concomitant]
     Indication: BLOOD IRON DECREASED
  14. UNKNOWN MEDICATION [Concomitant]
     Indication: ACUTE MYOCARDIAL INFARCTION
     Dosage: 1/1 DAY
     Dates: start: 20120625, end: 20121003

REACTIONS (1)
  - Anaemia [Unknown]
